FAERS Safety Report 19829182 (Version 2)
Quarter: 2021Q3

REPORT INFORMATION
  Report Type: Spontaneous
  Country: US (occurrence: US)
  Receive Date: 20210914
  Receipt Date: 20210920
  Transmission Date: 20211014
  Serious: Yes (Disabling, Other)
  Sender: FDA-Public Use
  Company Number: US-ACORDA-ACO_170248_2021

PATIENT
  Sex: Female

DRUGS (3)
  1. AUBAGIO [Suspect]
     Active Substance: TERIFLUNOMIDE
     Indication: MULTIPLE SCLEROSIS
     Dosage: 14 MILLIGRAM, QD
     Route: 048
     Dates: start: 20150913
  2. AMPYRA [Suspect]
     Active Substance: DALFAMPRIDINE
     Indication: PRODUCT USED FOR UNKNOWN INDICATION
     Dosage: UNK
     Route: 065
  3. GLIMEPIRIDE. [Concomitant]
     Active Substance: GLIMEPIRIDE
     Indication: BLOOD GLUCOSE ABNORMAL
     Dosage: UNK
     Route: 065

REACTIONS (8)
  - Cognitive disorder [Not Recovered/Not Resolved]
  - Breast cancer [Unknown]
  - Loss of personal independence in daily activities [Not Recovered/Not Resolved]
  - Unevaluable event [Unknown]
  - Dysgraphia [Unknown]
  - Confusional state [Not Recovered/Not Resolved]
  - Haemorrhagic disorder [Unknown]
  - Bedridden [Not Recovered/Not Resolved]
